FAERS Safety Report 23792611 (Version 2)
Quarter: 2024Q2

REPORT INFORMATION
  Report Type: Report from Study
  Country: US (occurrence: US)
  Receive Date: 20240429
  Receipt Date: 20240527
  Transmission Date: 20240716
  Serious: Yes (Hospitalization, Other)
  Sender: FDA-Public Use
  Company Number: US-ACADIA PHARMACEUTICALS INC.-ACA-2024-PIM-002008

PATIENT
  Age: 72 Year
  Sex: Female

DRUGS (16)
  1. NUPLAZID [Suspect]
     Active Substance: PIMAVANSERIN TARTRATE
     Indication: Parkinson^s disease
     Dosage: 34 MILLIGRAM, QD
     Route: 048
     Dates: start: 20230614
  2. NUPLAZID [Suspect]
     Active Substance: PIMAVANSERIN TARTRATE
     Indication: Hallucination
  3. NUPLAZID [Suspect]
     Active Substance: PIMAVANSERIN TARTRATE
     Indication: Parkinson^s disease psychosis
  4. SINEMET CR [Concomitant]
     Active Substance: CARBIDOPA\LEVODOPA
     Dosage: 50/200 MG
  5. SODIUM CHLORIDE [Concomitant]
     Active Substance: SODIUM CHLORIDE
     Dosage: 1 GRAM
  6. DONEPEZIL [Concomitant]
     Active Substance: DONEPEZIL\DONEPEZIL HYDROCHLORIDE
     Dosage: UNK
  7. NOURIANZ [Concomitant]
     Active Substance: ISTRADEFYLLINE
     Dosage: 40 MILLIGRAM
  8. ELIQUIS [Concomitant]
     Active Substance: APIXABAN
     Dosage: 5 MILLIGRAM
  9. ROPINIROLE [Concomitant]
     Active Substance: ROPINIROLE
     Dosage: 6 MILLIGRAM
  10. LIPITOR [Concomitant]
     Active Substance: ATORVASTATIN CALCIUM
     Dosage: 10 MILLIGRAM
  11. GABAPENTIN [Concomitant]
     Active Substance: GABAPENTIN
     Dosage: 600 MILLIGRAM
  12. TRAZODONE [Concomitant]
     Active Substance: TRAZODONE HYDROCHLORIDE
     Dosage: 300 MILLIGRAM
  13. MIRTAZAPINE [Concomitant]
     Active Substance: MIRTAZAPINE
     Dosage: 7.5 MILLIGRAM
  14. LINZESS [Concomitant]
     Active Substance: LINACLOTIDE
     Dosage: 290 MILLIGRAM
  15. HYDROCODONE [Concomitant]
     Active Substance: HYDROCODONE
     Dosage: 40 MILLIGRAM
  16. MAGNESIUM CITRATE [Concomitant]
     Active Substance: MAGNESIUM CITRATE
     Dosage: 500 MILLIGRAM

REACTIONS (3)
  - Hip fracture [Unknown]
  - Dizziness [Unknown]
  - Fall [Unknown]

NARRATIVE: CASE EVENT DATE: 20240413
